FAERS Safety Report 9154788 (Version 2)
Quarter: 2013Q2

REPORT INFORMATION
  Report Type: Report from Study
  Country: DE (occurrence: DE)
  Receive Date: 20130311
  Receipt Date: 20130402
  Transmission Date: 20140414
  Serious: Yes (Hospitalization)
  Sender: FDA-Public Use
  Company Number: DE-ROCHE-1171824

PATIENT
  Age: 73 Year
  Sex: Male
  Weight: 64 kg

DRUGS (8)
  1. BEVACIZUMAB [Suspect]
     Indication: COLORECTAL CANCER METASTATIC
     Dosage: LAST DOSE PRIOR TO SAE:28/NOV/2012
     Route: 042
     Dates: start: 20121031, end: 20121218
  2. BEVACIZUMAB [Suspect]
     Dosage: MOST RECENT DOSE: 25/FEB/2013
     Route: 042
     Dates: start: 20121031
  3. OXALIPLATIN [Suspect]
     Indication: COLORECTAL CANCER METASTATIC
     Dosage: LAST DOSE PRIOR TO SAE:28/NOV/2012
     Route: 042
     Dates: start: 20121031
  4. OXALIPLATIN [Suspect]
     Dosage: MOST RECENT DOSE: 25/FEB/2013
     Route: 042
     Dates: start: 20121031
  5. 5-FU [Suspect]
     Indication: COLORECTAL CANCER METASTATIC
     Dosage: LAST DOSE PRIOR TO SAE:28/NOV/2012
     Route: 042
     Dates: start: 20121031, end: 20121218
  6. FOLINIC ACID [Suspect]
     Indication: COLORECTAL CANCER METASTATIC
     Dosage: DL FORMS OF FOLINIC ACID
     Route: 042
     Dates: end: 20121218
  7. FOLINIC ACID [Suspect]
     Route: 042
     Dates: start: 20130108
  8. FOLINIC ACID [Suspect]
     Dosage: MOST RECENT DOSE: 25/FEB/2013
     Route: 042
     Dates: start: 20121031

REACTIONS (2)
  - Gastric ulcer haemorrhage [Recovered/Resolved]
  - Dehydration [Recovered/Resolved]
